FAERS Safety Report 9723159 (Version 1)
Quarter: 2013Q4

REPORT INFORMATION
  Report Type: Spontaneous
  Country: US (occurrence: None)
  Receive Date: 20131127
  Receipt Date: 20131127
  Transmission Date: 20140711
  Serious: Yes (Life-Threatening, Hospitalization, Disabling)
  Sender: FDA-Public Use
  Company Number: None

PATIENT
  Age: 53 Year
  Sex: Male
  Weight: 54.43 kg

DRUGS (5)
  1. ZIAGEN [Suspect]
     Indication: HIV INFECTION
     Dosage: 1 PILL 2X DAILY PO
     Route: 048
     Dates: start: 201003, end: 201309
  2. ASPIRIN [Concomitant]
  3. VITAMIN C [Concomitant]
  4. VITAMIN B [Concomitant]
  5. MULTI VITAMIN [Concomitant]

REACTIONS (5)
  - Myocardial infarction [None]
  - Nerve injury [None]
  - Arthralgia [None]
  - Hypertension [None]
  - Cachexia [None]
